FAERS Safety Report 13947438 (Version 2)
Quarter: 2017Q3

REPORT INFORMATION
  Report Type: Spontaneous
  Country: JP (occurrence: JP)
  Receive Date: 20170908
  Receipt Date: 20170925
  Transmission Date: 20171128
  Serious: Yes (Other)
  Sender: FDA-Public Use
  Company Number: JP-UCBSA-2017034167

PATIENT
  Age: 9 Year
  Sex: Male
  Weight: 30 kg

DRUGS (4)
  1. VIMPAT [Suspect]
     Active Substance: LACOSAMIDE
     Indication: EPILEPSY
     Dosage: 100 MG DAILY
     Route: 048
     Dates: start: 20170117, end: 2017
  2. FYCOMPA [Suspect]
     Active Substance: PERAMPANEL
     Indication: PRODUCT USED FOR UNKNOWN INDICATION
     Dosage: 1 MG, ONCE DAILY (QD)
     Route: 048
  3. VIMPAT [Suspect]
     Active Substance: LACOSAMIDE
     Indication: OFF LABEL USE
     Dosage: 100 MG, 2X/DAY (BID)
     Route: 048
     Dates: start: 2017, end: 20170725
  4. GABAPENTIN. [Suspect]
     Active Substance: GABAPENTIN
     Indication: PRODUCT USED FOR UNKNOWN INDICATION
     Dosage: 1000 MG, ONCE DAILY (QD)
     Route: 048

REACTIONS (4)
  - Generalised tonic-clonic seizure [Recovered/Resolved]
  - Arrhythmia [Recovered/Resolved]
  - Off label use [Unknown]
  - Prescribed overdose [Unknown]

NARRATIVE: CASE EVENT DATE: 201707
